FAERS Safety Report 21790130 (Version 4)
Quarter: 2023Q4

REPORT INFORMATION
  Report Type: Report from Study
  Country: DE (occurrence: DE)
  Receive Date: 20221228
  Receipt Date: 20231019
  Transmission Date: 20240109
  Serious: Yes (Hospitalization, Other)
  Sender: FDA-Public Use
  Company Number: DE-002147023-NVSC2022DE232769

PATIENT
  Age: 64 Year
  Sex: Female

DRUGS (24)
  1. METHOTREXATE [Suspect]
     Active Substance: METHOTREXATE
     Indication: Product used for unknown indication
     Dosage: 17.5 MILLIGRAM, QW
     Route: 065
  2. METHOTREXATE [Suspect]
     Active Substance: METHOTREXATE
     Dosage: 15 MILLIGRAM
     Route: 065
  3. METHOTREXATE [Suspect]
     Active Substance: METHOTREXATE
     Dosage: 15 MILLIGRAM
     Route: 065
  4. METHOTREXATE [Suspect]
     Active Substance: METHOTREXATE
     Dosage: 50 MILLIGRAM, QW
     Route: 065
     Dates: end: 20220615
  5. MONTELUKAST [Suspect]
     Active Substance: MONTELUKAST SODIUM
     Indication: Product used for unknown indication
     Dosage: UNK
     Route: 065
  6. ATORVASTATIN [Suspect]
     Active Substance: ATORVASTATIN
     Indication: Product used for unknown indication
     Dosage: UNK
     Route: 065
  7. IBUPROFEN [Suspect]
     Active Substance: IBUPROFEN
     Indication: Product used for unknown indication
     Dosage: UNK
     Route: 065
  8. ASPIRIN [Suspect]
     Active Substance: ASPIRIN
     Indication: Product used for unknown indication
     Dosage: UNK
     Route: 065
  9. AZULFIDINE [Suspect]
     Active Substance: SULFASALAZINE
     Indication: Product used for unknown indication
     Dosage: 2000 MG, QD
     Route: 065
  10. ERELZI [Suspect]
     Active Substance: ETANERCEPT-SZZS
     Indication: Rheumatoid arthritis
     Dosage: 50 MG, QW (EVERY 7 DAYS)
     Route: 065
     Dates: start: 202202, end: 20220615
  11. ALBUTEROL [Suspect]
     Active Substance: ALBUTEROL
     Indication: Product used for unknown indication
     Dosage: UNK
     Route: 065
  12. SULFASALAZINE [Suspect]
     Active Substance: SULFASALAZINE
     Indication: Product used for unknown indication
     Dosage: 2000 MILLIGRAM, QD
     Route: 065
  13. SULFASALAZINE [Suspect]
     Active Substance: SULFASALAZINE
     Dosage: 2000 MILLIGRAM
     Route: 065
  14. SULFASALAZINE [Suspect]
     Active Substance: SULFASALAZINE
     Dosage: 1000 MILLIGRAM
     Route: 065
  15. NASONEX [Concomitant]
     Active Substance: MOMETASONE FUROATE
     Indication: Product used for unknown indication
     Dosage: UNK
     Route: 065
  16. PREDNISONE [Concomitant]
     Active Substance: PREDNISONE
     Indication: Product used for unknown indication
     Dosage: UNK
     Route: 065
  17. FLUTICASONE FUROATE\VILANTEROL TRIFENATATE [Concomitant]
     Active Substance: FLUTICASONE FUROATE\VILANTEROL TRIFENATATE
     Indication: Product used for unknown indication
     Dosage: UNK
     Route: 065
  18. TROSPIUM CHLORIDE [Concomitant]
     Active Substance: TROSPIUM CHLORIDE
     Indication: Product used for unknown indication
     Dosage: UNK
     Route: 065
  19. CANDESARTAN CILEXETIL [Concomitant]
     Active Substance: CANDESARTAN CILEXETIL
     Indication: Product used for unknown indication
     Dosage: UNK
     Route: 065
  20. CALCIUM CARBONATE\CHOLECALCIFEROL [Concomitant]
     Active Substance: CALCIUM CARBONATE\CHOLECALCIFEROL
     Indication: Product used for unknown indication
     Dosage: UNK
     Route: 065
  21. HERBALS [Concomitant]
     Active Substance: HERBALS
     Indication: Product used for unknown indication
     Dosage: UNK DISTILLATE FROM A MIXTURE OF RECTIFIED
     Route: 065
  22. PANTOZOL [Concomitant]
     Active Substance: PANTOPRAZOLE SODIUM
     Indication: Product used for unknown indication
     Dosage: UNK
     Route: 065
  23. CHOLECALCIFEROL [Concomitant]
     Active Substance: CHOLECALCIFEROL
     Indication: Product used for unknown indication
     Dosage: UNK
     Route: 065
  24. PANTOPRAZOLE [Concomitant]
     Active Substance: PANTOPRAZOLE
     Indication: Product used for unknown indication
     Dosage: UNK
     Route: 065

REACTIONS (5)
  - Left ventricular failure [Not Recovered/Not Resolved]
  - Coronary artery disease [Not Recovered/Not Resolved]
  - Ejection fraction decreased [Not Recovered/Not Resolved]
  - Thrombocytopenia [Unknown]
  - Anaemia [Unknown]

NARRATIVE: CASE EVENT DATE: 20220317
